FAERS Safety Report 17590223 (Version 1)
Quarter: 2020Q1

REPORT INFORMATION
  Report Type: Spontaneous
  Country: US (occurrence: US)
  Receive Date: 20200326
  Receipt Date: 20200326
  Transmission Date: 20200409
  Serious: Yes (Other)
  Sender: FDA-Public Use
  Company Number: None

PATIENT
  Age: 65 Year
  Sex: Female
  Weight: 83.25 kg

DRUGS (2)
  1. AZITHROMYCIN TABLET USP, 250 MG [Suspect]
     Active Substance: AZITHROMYCIN
     Indication: SINUSITIS
     Dosage: ?          QUANTITY:1 CAPSULE(S);?
     Route: 048
     Dates: start: 20200323, end: 20200324
  2. AZITHROMYCIN TABLET USP, 250 MG [Suspect]
     Active Substance: AZITHROMYCIN
     Indication: EAR INFECTION
     Dosage: ?          QUANTITY:1 CAPSULE(S);?
     Route: 048
     Dates: start: 20200323, end: 20200324

REACTIONS (6)
  - Balance disorder [None]
  - Vomiting [None]
  - Nausea [None]
  - Dizziness [None]
  - Suspected product contamination [None]
  - Abdominal discomfort [None]

NARRATIVE: CASE EVENT DATE: 20200324
